FAERS Safety Report 4349482-4 (Version None)
Quarter: 2004Q2

REPORT INFORMATION
  Report Type: 
  Country: None (occurrence: None)
  Receive Date: 20040426
  Receipt Date: 20040413
  Transmission Date: 20050107
  Serious: Yes (Disabling)
  Sender: FDA-Public Use
  Company Number: 2004AP01254

PATIENT
  Age: 72 Year
  Sex: Female

DRUGS (9)
  1. IRESSA [Suspect]
     Indication: LUNG ADENOCARCINOMA
     Dosage: 250 MG DAILY PO
     Route: 048
     Dates: start: 20031015, end: 20031225
  2. IRESSA [Suspect]
     Indication: NON-SMALL CELL LUNG CANCER
     Dosage: 250 MG DAILY PO
     Route: 048
     Dates: start: 20031015, end: 20031225
  3. PRIMPERAN INJ [Concomitant]
  4. GASTER D [Concomitant]
  5. MEDICON [Concomitant]
  6. CODEINE PHOSPHATE [Concomitant]
  7. CARBOPLATIN [Concomitant]
  8. PACLITAXEL [Concomitant]
  9. RADIATION THERAPY [Concomitant]

REACTIONS (1)
  - FACIAL PALSY [None]
